FAERS Safety Report 7068272-5 (Version None)
Quarter: 2010Q4

REPORT INFORMATION
  Report Type: 
  Country: None (occurrence: None)
  Receive Date: 20101027
  Receipt Date: 20101027
  Transmission Date: 20110411
  Serious: Yes (Hospitalization, Disabling)
  Sender: FDA-Public Use
  Company Number: None

PATIENT
  Age: 54 Year
  Sex: Female
  Weight: 77.1115 kg

DRUGS (8)
  1. ZOMETA [Suspect]
     Indication: BONE CANCER METASTATIC
     Dosage: NOT KNOWN WEEKLY IV
     Route: 042
     Dates: start: 20050315, end: 20060115
  2. ZOMETA [Suspect]
     Indication: MULTIPLE MYELOMA
     Dosage: NOT KNOWN WEEKLY IV
     Route: 042
     Dates: start: 20050315, end: 20060115
  3. VELCADE -CHEMOTHERAPY- [Concomitant]
  4. DEXAMETHASONE -CHEMOTHERAPY- [Concomitant]
  5. PROCRIT MORPHINE SULFATE [Concomitant]
  6. THYROID LEXAPRO [Concomitant]
  7. PREDNISONE [Concomitant]
  8. THALIDOMIDE [Concomitant]

REACTIONS (4)
  - INFECTION [None]
  - OSTEONECROSIS OF JAW [None]
  - PAIN [None]
  - TOOTH EXTRACTION [None]
